FAERS Safety Report 24941908 (Version 1)
Quarter: 2025Q1

REPORT INFORMATION
  Report Type: Spontaneous
  Country: US (occurrence: None)
  Receive Date: 20250206
  Receipt Date: 20250206
  Transmission Date: 20250409
  Serious: Yes (Other)
  Sender: FDA-CTU
  Company Number: None

PATIENT
  Age: 28 Year
  Sex: Female
  Weight: 49.5 kg

DRUGS (4)
  1. IVABRADINE [Suspect]
     Active Substance: IVABRADINE
     Indication: Postural orthostatic tachycardia syndrome
     Dosage: OTHER QUANTITY : 0.5 TABLET(S);?FREQUENCY : TWICE A DAY;?
     Route: 048
  2. FOOD PRODUCT, OTHER [Suspect]
     Active Substance: FOOD PRODUCT, OTHER
  3. TOPIRAMATE [Concomitant]
     Active Substance: TOPIRAMATE
  4. VITAMIN D3 [Concomitant]
     Active Substance: CHOLECALCIFEROL

REACTIONS (3)
  - Seizure [None]
  - Chest pain [None]
  - Labelled drug-food interaction issue [None]

NARRATIVE: CASE EVENT DATE: 20250203
